FAERS Safety Report 15869368 (Version 1)
Quarter: 2019Q1

REPORT INFORMATION
  Report Type: Report from Study
  Country: IT (occurrence: IT)
  Receive Date: 20190125
  Receipt Date: 20190125
  Transmission Date: 20190417
  Serious: Yes (Hospitalization, Other)
  Sender: FDA-Public Use
  Company Number: IT-PFIZER INC-2019029137

PATIENT
  Age: 47 Year
  Sex: Female

DRUGS (4)
  1. OLANZAPINE. [Suspect]
     Active Substance: OLANZAPINE
     Dosage: 50 MG, SINGLE
     Route: 048
     Dates: start: 20181225, end: 20181225
  2. ZOLPIDEM TARTRATE. [Suspect]
     Active Substance: ZOLPIDEM TARTRATE
     Dosage: 300 MG, SINGLE
     Route: 048
     Dates: start: 20181225, end: 20181225
  3. XANAX [Suspect]
     Active Substance: ALPRAZOLAM
     Dosage: 30 DF, SINGLE
     Route: 048
     Dates: start: 20181225, end: 20181225
  4. FLURAZEPAM MONOHYDROCHLORIDE [Suspect]
     Active Substance: FLURAZEPAM MONOHYDROCHLORIDE
     Dosage: 60 MG, SINGLE
     Route: 048
     Dates: start: 20181225, end: 20181225

REACTIONS (3)
  - Sopor [Recovered/Resolved]
  - Intentional overdose [Recovered/Resolved]
  - Drug abuse [Recovered/Resolved]

NARRATIVE: CASE EVENT DATE: 20181225
